FAERS Safety Report 16384700 (Version 2)
Quarter: 2019Q2

REPORT INFORMATION
  Report Type: Report from Study
  Country: IT (occurrence: IT)
  Receive Date: 20190603
  Receipt Date: 20190607
  Transmission Date: 20190711
  Serious: Yes (Hospitalization, Other)
  Sender: FDA-Public Use
  Company Number: IT-MYLANLABS-2019M1051625

PATIENT
  Age: 56 Year
  Sex: Female

DRUGS (7)
  1. QUETIAPINE. [Suspect]
     Active Substance: QUETIAPINE
     Indication: PRODUCT USED FOR UNKNOWN INDICATION
     Dosage: 750 MILLIGRAM, TOTAL
     Route: 048
     Dates: start: 20181020, end: 20181020
  2. ACETYLSALICYLIC ACID [Suspect]
     Active Substance: ASPIRIN
     Indication: PRODUCT USED FOR UNKNOWN INDICATION
     Dosage: 3 GRAM, TOTAL
     Route: 048
     Dates: start: 20181020, end: 20181020
  3. PATROL [Suspect]
     Active Substance: ACETAMINOPHEN\TRAMADOL HYDROCHLORIDE
     Indication: PRODUCT USED FOR UNKNOWN INDICATION
     Dosage: UNK
     Dates: start: 20181020, end: 20181020
  4. VENLAFAXINE [Suspect]
     Active Substance: VENLAFAXINE HYDROCHLORIDE
     Indication: PRODUCT USED FOR UNKNOWN INDICATION
     Dosage: 1.05 GRAM, TOTAL
     Route: 048
     Dates: start: 20181020, end: 20181020
  5. TRAMADOL. [Suspect]
     Active Substance: TRAMADOL
     Indication: PRODUCT USED FOR UNKNOWN INDICATION
     Dosage: 2 GRAM, TOTAL
     Route: 048
     Dates: start: 20181020, end: 20181020
  6. XANAX [Suspect]
     Active Substance: ALPRAZOLAM
     Indication: PRODUCT USED FOR UNKNOWN INDICATION
     Dosage: UNK
     Dates: start: 20181020, end: 20181020
  7. XANAX [Suspect]
     Active Substance: ALPRAZOLAM
     Indication: PRODUCT USED FOR UNKNOWN INDICATION
     Dosage: 5 MILLIGRAM, TOTAL
     Route: 048
     Dates: start: 20181020, end: 20181020

REACTIONS (5)
  - Toxicity to various agents [Not Recovered/Not Resolved]
  - Intentional product misuse [Unknown]
  - Intentional self-injury [Not Recovered/Not Resolved]
  - Sopor [Not Recovered/Not Resolved]
  - Drug abuse [Unknown]

NARRATIVE: CASE EVENT DATE: 20181020
